FAERS Safety Report 6106210-X (Version None)
Quarter: 2009Q1

REPORT INFORMATION
  Report Type: 
  Country: None (occurrence: None)
  Receive Date: 20090306
  Receipt Date: 20090224
  Transmission Date: 20090719
  Serious: Yes (Other)
  Sender: FDA-Public Use
  Company Number: GB-ELI_LILLY_AND_COMPANY-GB200902007062

PATIENT
  Age: 36 Year
  Sex: Female

DRUGS (4)
  1. BYETTA [Suspect]
     Indication: TYPE 2 DIABETES MELLITUS
     Dosage: 5 UG, 2/D
     Route: 058
  2. BYETTA [Suspect]
     Dosage: 10 UG, 2/D
     Route: 058
  3. METFORMIN [Concomitant]
     Dosage: 1 G, DAILY (1/D)
     Route: 065
  4. GLICLAZIDE [Concomitant]
     Dosage: 160 MG, 2/D
     Route: 065

REACTIONS (2)
  - DIABETIC RETINOPATHY [None]
  - WEIGHT DECREASED [None]
